FAERS Safety Report 6572730-7 (Version None)
Quarter: 2010Q1

REPORT INFORMATION
  Report Type: 
  Country: None (occurrence: None)
  Receive Date: 20100205
  Receipt Date: 20100128
  Transmission Date: 20100710
  Serious: Yes (Death, Hospitalization)
  Sender: FDA-Public Use
  Company Number: US-AMGEN-QUU389074

PATIENT

DRUGS (1)
  1. ARANESP [Suspect]
     Indication: ANAEMIA
     Route: 065
     Dates: start: 20091218

REACTIONS (1)
  - DEATH [None]
